FAERS Safety Report 24338461 (Version 1)
Quarter: 2024Q3

REPORT INFORMATION
  Report Type: Report from Study
  Country: DE (occurrence: DE)
  Receive Date: 20240919
  Receipt Date: 20240919
  Transmission Date: 20241016
  Serious: Yes (Other)
  Sender: REGENERON
  Company Number: DE-BAYER-2024A130699

PATIENT

DRUGS (1)
  1. EYLEA HD [Suspect]
     Active Substance: AFLIBERCEPT
     Indication: Macular oedema
     Dosage: 8 MG, STRENGTH: 114.3 MG/ML
     Route: 031

REACTIONS (1)
  - Eye haematoma [Unknown]
